FAERS Safety Report 12001510 (Version 1)
Quarter: 2016Q1

REPORT INFORMATION
  Report Type: Spontaneous
  Country: US (occurrence: US)
  Receive Date: 20160204
  Receipt Date: 20160204
  Transmission Date: 20160526
  Serious: Yes (Other)
  Sender: FDA-Public Use
  Company Number: US-GLAXOSMITHKLINE-US2016009239

PATIENT
  Age: 69 Year
  Sex: Female

DRUGS (1)
  1. SENSODYNE COMPLETE PROTECTION [Suspect]
     Active Substance: STANNOUS FLUORIDE
     Indication: DENTAL CLEANING
     Dosage: UNK

REACTIONS (2)
  - Oropharyngeal blistering [Not Recovered/Not Resolved]
  - Pharyngeal haemorrhage [Recovered/Resolved]

NARRATIVE: CASE EVENT DATE: 20160121
